FAERS Safety Report 6113306-5 (Version None)
Quarter: 2009Q1

REPORT INFORMATION
  Report Type: 
  Country: None (occurrence: None)
  Receive Date: 20090312
  Receipt Date: 20000913
  Transmission Date: 20090719
  Serious: No
  Sender: FDA-Public Use
  Company Number: US-ABBOTT-08P-163-0456431-00

PATIENT

DRUGS (4)
  1. DEPAKOTE [Suspect]
     Indication: DRUG USE FOR UNKNOWN INDICATION
  2. RISPERIDONE [Interacting]
     Indication: DRUG USE FOR UNKNOWN INDICATION
  3. BUPROPION HCL [Interacting]
     Indication: DRUG USE FOR UNKNOWN INDICATION
  4. CLOZAPINE [Interacting]
     Indication: DRUG USE FOR UNKNOWN INDICATION

REACTIONS (5)
  - DEPRESSION [None]
  - DROOLING [None]
  - DRUG INTERACTION [None]
  - DYSPHAGIA [None]
  - SOMNOLENCE [None]
